FAERS Safety Report 5691578-9 (Version None)
Quarter: 2008Q2

REPORT INFORMATION
  Report Type: 
  Country: None (occurrence: None)
  Receive Date: 20080402
  Receipt Date: 20080325
  Transmission Date: 20081010
  Serious: Yes (Other)
  Sender: FDA-Public Use
  Company Number: CA-JNJFOC-20071205992

PATIENT
  Age: 38 Year
  Sex: Female
  Weight: 40.82 kg

DRUGS (12)
  1. REMICADE [Suspect]
     Indication: RHEUMATOID ARTHRITIS
     Route: 042
  2. NYSTATIN [Concomitant]
  3. PREDNISOLONE [Concomitant]
  4. METHOTREXATE [Concomitant]
  5. ALENDRONATE SODIUM [Concomitant]
  6. ATROPINE [Concomitant]
  7. GABAPENTIN [Concomitant]
  8. METADOL [Concomitant]
  9. METHADONE HCL [Concomitant]
  10. NAPROXEN [Concomitant]
  11. LOSEC I.V. [Concomitant]
  12. DILANTIN [Concomitant]

REACTIONS (2)
  - INTRAOCULAR PRESSURE INCREASED [None]
  - OCULAR HYPERAEMIA [None]
